FAERS Safety Report 4450413-7 (Version None)
Quarter: 2004Q3

REPORT INFORMATION
  Report Type: 
  Country: None (occurrence: None)
  Receive Date: 20040915
  Receipt Date: 20040914
  Transmission Date: 20050211
  Serious: Yes (Death)
  Sender: FDA-Public Use
  Company Number: 04-08-1137

PATIENT
  Age: 85 Year
  Sex: Female
  Weight: 65.7716 kg

DRUGS (4)
  1. CLOZAPINE [Suspect]
     Indication: SCHIZOPHRENIA
     Dosage: 125MG QD ORAL
     Route: 048
     Dates: start: 20030201, end: 20040710
  2. ZYPREXA [Concomitant]
  3. ATIVAN [Concomitant]
  4. EFFEXOR XR [Concomitant]

REACTIONS (1)
  - CARDIO-RESPIRATORY ARREST [None]
